APPROVED DRUG PRODUCT: HERNEXEOS
Active Ingredient: ZONGERTINIB
Strength: 60MG
Dosage Form/Route: TABLET;ORAL
Application: N219042 | Product #001
Applicant: BOEHRINGER INGELHEIM PHARMACEUTICALS INC
Approved: Aug 8, 2025 | RLD: Yes | RS: Yes | Type: RX

PATENTS:
Patent 11608343 | Expires: Jul 21, 2041
Patent 12171739 | Expires: Nov 15, 2026

EXCLUSIVITY:
Code: NCE | Date: Aug 8, 2030